FAERS Safety Report 10073763 (Version 1)
Quarter: 2014Q2

REPORT INFORMATION
  Report Type: Spontaneous
  Country: US (occurrence: US)
  Receive Date: 20140411
  Receipt Date: 20140411
  Transmission Date: 20141212
  Serious: Yes (Other)
  Sender: FDA-Public Use
  Company Number: US-BAXTER-2014BAX017626

PATIENT
  Age: 63 Year
  Sex: Female

DRUGS (2)
  1. SEVOFLURANE, USP [Suspect]
     Indication: ANAESTHESIA
     Route: 065
  2. DOFETILIDE [Suspect]
     Indication: ATRIAL FIBRILLATION
     Route: 065

REACTIONS (4)
  - Electrocardiogram QT prolonged [Recovered/Resolved]
  - Electrocardiogram T wave abnormal [Unknown]
  - Ventricular fibrillation [Unknown]
  - Ventricular extrasystoles [Recovered/Resolved]
